FAERS Safety Report 6559039-2 (Version None)
Quarter: 2010Q1

REPORT INFORMATION
  Report Type: 
  Country: None (occurrence: None)
  Receive Date: 20100129
  Receipt Date: 20100114
  Transmission Date: 20100710
  Serious: Yes (Other)
  Sender: FDA-Public Use
  Company Number: GXBR2009US02071

PATIENT
  Sex: Female
  Weight: 63.039 kg

DRUGS (2)
  1. RIBAVIRIN CAPSULES (NGX) [Suspect]
     Indication: HEPATITIS C
     Dosage: 200 MG, BID2SDO
     Route: 048
     Dates: start: 20090710
  2. PEGASYS [Suspect]
     Indication: HEPATITIS C
     Dosage: 180 UG, QW
     Route: 058
     Dates: start: 20090710

REACTIONS (12)
  - ANAEMIA [None]
  - ARTHRALGIA [None]
  - ERYTHEMA [None]
  - FATIGUE [None]
  - FEELING HOT [None]
  - OEDEMA PERIPHERAL [None]
  - OSTEOARTHRITIS [None]
  - OSTEOPENIA [None]
  - PAIN [None]
  - PAIN IN EXTREMITY [None]
  - PYREXIA [None]
  - SWELLING [None]
